FAERS Safety Report 8820540 (Version 1)
Quarter: 2012Q4

REPORT INFORMATION
  Report Type: 
  Country: GB (occurrence: GB)
  Receive Date: 20121002
  Receipt Date: 20121002
  Transmission Date: 20130627
  Serious: Yes (Hospitalization)
  Sender: FDA-Public Use
  Company Number: GB-BAUSCH-BL-2012-000952

PATIENT
  Age: 51 Year

DRUGS (4)
  1. ATROPINE SULFATE [Suspect]
     Indication: PALLIATIVE CARE
     Route: 050
  2. CLONIDINE [Suspect]
     Indication: PALLIATIVE CARE
     Route: 050
  3. GLYCOPYRRONIUM BROMIDE [Suspect]
     Indication: PALLIATIVE CARE
     Route: 050
  4. RILUZOLE [Suspect]
     Indication: PALLIATIVE CARE
     Route: 050

REACTIONS (4)
  - Feeding tube complication [Unknown]
  - Excessive granulation tissue [Unknown]
  - Incorrect route of drug administration [Unknown]
  - Off label use [Unknown]
